FAERS Safety Report 8858478 (Version 2)
Quarter: 2013Q1

REPORT INFORMATION
  Report Type: Spontaneous
  Country: BR (occurrence: BR)
  Receive Date: 20121024
  Receipt Date: 20130110
  Transmission Date: 20140127
  Serious: Yes (Other)
  Sender: FDA-Public Use
  Company Number: BR-AMGEN-BRASP2012039663

PATIENT
  Age: 61 Year
  Sex: Male
  Weight: 69 kg

DRUGS (12)
  1. CALCIUM CARBONATE [Concomitant]
     Dosage: 600 MG, 1X/DAY
     Route: 048
  2. ENBREL [Suspect]
     Indication: RHEUMATOID ARTHRITIS
     Dosage: 50 MG, QWK
     Route: 058
     Dates: start: 2006, end: 201208
  3. ENBREL [Suspect]
     Dosage: 50 MG, QWK
     Route: 058
     Dates: start: 200605, end: 201208
  4. ALLOPURINOL [Concomitant]
     Indication: RHEUMATOID ARTHRITIS
     Dosage: 100 MG, 1X/DAY
     Route: 048
  5. METHOTREXATE [Concomitant]
     Indication: RHEUMATOID ARTHRITIS
     Dosage: 15 MG, THEE TIMES WEEKLY
     Route: 048
  6. CALCIUM CARBONATE AND VITAMIN D [Concomitant]
     Indication: RHEUMATOID ARTHRITIS
     Dosage: UNK
  7. ALENDRONATE SODIUM [Concomitant]
     Dosage: 700 MG, WEEKLY
     Route: 048
  8. FOLIC ACID [Concomitant]
     Indication: RHEUMATOID ARTHRITIS
     Dosage: 5 MG, WEEKLY
     Route: 048
  9. FAMOTIDINE [Concomitant]
     Indication: RHEUMATOID ARTHRITIS
     Dosage: UNK
  10. MELOXICAM [Concomitant]
     Indication: RHEUMATOID ARTHRITIS
     Dosage: UNK
  11. PARACETAMOL [Concomitant]
     Indication: RHEUMATOID ARTHRITIS
     Dosage: 300 MG, QD 1X/DAY
     Route: 048
  12. LISINOPRIL [Concomitant]
     Indication: HYPERTENSION
     Dosage: UNK

REACTIONS (2)
  - Peripheral nerve infection [Unknown]
  - Prostate infection [Unknown]
